FAERS Safety Report 17562381 (Version 2)
Quarter: 2020Q2

REPORT INFORMATION
  Report Type: Spontaneous
  Country: US (occurrence: US)
  Receive Date: 20200319
  Receipt Date: 20200427
  Transmission Date: 20200713
  Serious: Yes (Death, Other)
  Sender: FDA-Public Use
  Company Number: US-TASMAN PHARMA, INC.-2020TSM00120

PATIENT
  Sex: Male
  Weight: 113.38 kg

DRUGS (3)
  1. CLOZAPINE. [Suspect]
     Active Substance: CLOZAPINE
     Indication: SCHIZOPHRENIA
     Dosage: UNK
  2. CLOZAPINE. [Suspect]
     Active Substance: CLOZAPINE
     Dosage: 100 MG, 1X/DAY IN THE MORNING
     Route: 048
  3. CLOZAPINE. [Suspect]
     Active Substance: CLOZAPINE
     Dosage: 325 MG, 1X/DAY AT BEDTIME
     Route: 048

REACTIONS (3)
  - Subarachnoid haemorrhage [Fatal]
  - Intracranial aneurysm [Not Recovered/Not Resolved]
  - Ruptured cerebral aneurysm [Fatal]
